FAERS Safety Report 18425339 (Version 1)
Quarter: 2020Q4

REPORT INFORMATION
  Report Type: Spontaneous
  Country: US (occurrence: US)
  Receive Date: 20201024
  Receipt Date: 20201024
  Transmission Date: 20210114
  Serious: No
  Sender: FDA-Public Use
  Company Number: None

PATIENT
  Age: 36 Year
  Sex: Female
  Weight: 65.25 kg

DRUGS (3)
  1. MONTELUKAST [Suspect]
     Active Substance: MONTELUKAST SODIUM
     Indication: CAPSULAR CONTRACTURE ASSOCIATED WITH IMPLANT
     Dosage: ?          QUANTITY:1 TABLET(S);?
     Route: 048
  2. LOESTRIN NOS [Concomitant]
     Active Substance: ETHINYL ESTRADIOL\NORETHINDRONE ACETATE
  3. MONTELUKAST [Suspect]
     Active Substance: MONTELUKAST SODIUM
     Indication: PROPHYLAXIS
     Dosage: ?          QUANTITY:1 TABLET(S);?
     Route: 048

REACTIONS (10)
  - Cardiac flutter [None]
  - Hyperhidrosis [None]
  - Heart rate increased [None]
  - Emotional disorder [None]
  - Palpitations [None]
  - Nausea [None]
  - Anxiety [None]
  - Mood altered [None]
  - Product complaint [None]
  - Depression [None]

NARRATIVE: CASE EVENT DATE: 20201009
